FAERS Safety Report 23089712 (Version 1)
Quarter: 2023Q4

REPORT INFORMATION
  Report Type: Spontaneous
  Country: CN (occurrence: None)
  Receive Date: 20231020
  Receipt Date: 20231020
  Transmission Date: 20240110
  Serious: Yes (Hospitalization, Other)
  Sender: FDA-Public Use
  Company Number: 2023A239071

PATIENT
  Age: 46 Year
  Sex: Female
  Weight: 51 kg

DRUGS (2)
  1. SAVOLITINIB [Suspect]
     Active Substance: SAVOLITINIB
     Indication: Lung neoplasm malignant
     Route: 048
     Dates: start: 20230902, end: 20230918
  2. OSIMERTINIB MESYLATE [Suspect]
     Active Substance: OSIMERTINIB MESYLATE
     Indication: Lung neoplasm malignant
     Route: 048
     Dates: start: 20230902, end: 20230918

REACTIONS (4)
  - Pulmonary oedema [Recovering/Resolving]
  - Pericardial effusion [Recovering/Resolving]
  - Hepatic function abnormal [Recovering/Resolving]
  - Hyperpyrexia [Recovering/Resolving]

NARRATIVE: CASE EVENT DATE: 20230916
